FAERS Safety Report 19509597 (Version 2)
Quarter: 2022Q1

REPORT INFORMATION
  Report Type: Spontaneous
  Country: GB (occurrence: GB)
  Receive Date: 20210708
  Receipt Date: 20220325
  Transmission Date: 20220423
  Serious: Yes (Life-Threatening, Hospitalization)
  Sender: FDA-Public Use
  Company Number: None

PATIENT
  Age: 31 Year
  Sex: Male
  Weight: 100 kg

DRUGS (3)
  1. LEVOTHYROXINE [Suspect]
     Active Substance: LEVOTHYROXINE
     Indication: Hypothyroidism
     Dosage: 100MG
     Route: 048
     Dates: start: 20210305, end: 20210327
  2. LEVOTHYROXINE [Suspect]
     Active Substance: LEVOTHYROXINE
     Dosage: 100MG INCREASED TO 150MG
     Route: 048
     Dates: start: 20210305, end: 20210327
  3. LIOTHYRONINE [Concomitant]
     Active Substance: LIOTHYRONINE
     Dates: start: 20210328

REACTIONS (20)
  - Seizure [Recovered/Resolved]
  - Adverse drug reaction [Unknown]
  - Headache [Recovered/Resolved]
  - Dermatitis allergic [Recovered/Resolved]
  - Adverse drug reaction [Recovered/Resolved]
  - Muscle twitching [Recovered/Resolved]
  - Urinary incontinence [Recovered/Resolved]
  - Dysarthria [Recovered/Resolved]
  - Confusional state [Recovered/Resolved]
  - Myalgia [Recovered/Resolved]
  - Feeding disorder [Recovered/Resolved]
  - Chest pain [Recovered/Resolved]
  - Gait inability [Recovered/Resolved]
  - Medication error [Unknown]
  - Hypoacusis [Recovered/Resolved]
  - Urticaria [Recovered/Resolved]
  - Amnesia [Recovered/Resolved]
  - Muscular weakness [Recovered/Resolved]
  - Sensitive skin [Recovered/Resolved]
  - Aphasia [Recovered/Resolved]

NARRATIVE: CASE EVENT DATE: 20210305
